FAERS Safety Report 8891381 (Version 1)
Quarter: 2012Q4

REPORT INFORMATION
  Report Type: Spontaneous
  Country: US (occurrence: None)
  Receive Date: 20121105
  Receipt Date: 20121105
  Transmission Date: 20130627
  Serious: Yes (Other)
  Sender: FDA-Public Use
  Company Number: None

PATIENT
  Sex: Female

DRUGS (1)
  1. LORTAB [Suspect]
     Route: 048
     Dates: end: 2006

REACTIONS (4)
  - Malaise [None]
  - Drug effect decreased [None]
  - Product formulation issue [None]
  - Product substitution issue [None]
